FAERS Safety Report 7949540-9 (Version None)
Quarter: 2011Q4

REPORT INFORMATION
  Report Type: 
  Country: None (occurrence: None)
  Receive Date: 20111130
  Receipt Date: 20111121
  Transmission Date: 20120403
  Serious: Yes (Hospitalization)
  Sender: FDA-Public Use
  Company Number: US-BAYER-2011-048946

PATIENT
  Age: 38 Year
  Sex: Female
  Weight: 100 kg

DRUGS (13)
  1. BENICAR [Concomitant]
     Indication: BLOOD PRESSURE ABNORMAL
     Dosage: 20 MG, QD
     Route: 048
     Dates: start: 20060101, end: 20090101
  2. HALFLYTELY [BISACODYL,ELECTROLYTES NOS,MACROGOL 3350] [Concomitant]
     Dosage: UNK
     Dates: start: 20090424
  3. VITAMIN D [Concomitant]
     Dosage: 1.25 MG, UNK
     Dates: start: 20090429
  4. VITAMIN B-12 [Concomitant]
     Dosage: 1 MG, UNK
     Route: 048
     Dates: start: 20090429
  5. YASMIN [Suspect]
     Indication: CONTRACEPTION
     Dosage: UNK
     Route: 048
     Dates: start: 20050901, end: 20090401
  6. TRIAMTERENE AND HYDROCHLOROTHIAZIDE [Concomitant]
     Indication: BLOOD PRESSURE ABNORMAL
     Dosage: UNK
     Dates: start: 20080101
  7. POTASSIUM ACETATE [Concomitant]
  8. NEBIVOLOL HCL [Concomitant]
     Indication: BLOOD PRESSURE ABNORMAL
     Dosage: 5 MG, UNK
     Route: 048
     Dates: start: 20080101
  9. POTASSIUM ACETATE [Concomitant]
     Indication: MUSCLE SPASMS
     Dosage: 10 MEQ, TID
     Dates: start: 20080101
  10. YAZ [Suspect]
     Indication: CONTRACEPTION
     Dosage: UNK
     Route: 048
     Dates: start: 20050901, end: 20090401
  11. VYTORIN [Concomitant]
     Indication: BLOOD CHOLESTEROL ABNORMAL
     Dosage: UNK
     Route: 048
     Dates: start: 20080101
  12. CEPHALEXIN [Concomitant]
     Dosage: 500 MG, UNK
     Dates: start: 20090327
  13. PRILOSEC [Concomitant]
     Dosage: 20 MG, UNK
     Route: 048
     Dates: start: 20090429

REACTIONS (4)
  - PAIN [None]
  - PULMONARY EMBOLISM [None]
  - CHOLECYSTECTOMY [None]
  - CHOLECYSTITIS [None]
